FAERS Safety Report 8684484 (Version 2)
Quarter: 2012Q4

REPORT INFORMATION
  Report Type: 
  Country: FR (occurrence: FR)
  Receive Date: 20120726
  Receipt Date: 20121206
  Transmission Date: 20130627
  Serious: Yes (Hospitalization)
  Sender: FDA-Public Use
  Company Number: FR-ASTRAZENECA-2012SE50306

PATIENT
  Age: 23010 Day
  Sex: Male

DRUGS (1)
  1. CRESTOR [Suspect]
     Route: 048
     Dates: start: 20120120, end: 20120229

REACTIONS (6)
  - Hepatic necrosis [Unknown]
  - Pleural effusion [Unknown]
  - Colonic fistula [Unknown]
  - Pleural fistula [Unknown]
  - Cholecystitis [Unknown]
  - Pancreatitis acute [Not Recovered/Not Resolved]
